FAERS Safety Report 20455729 (Version 16)
Quarter: 2024Q2

REPORT INFORMATION
  Report Type: Other
  Country: CA (occurrence: None)
  Receive Date: 20220210
  Receipt Date: 20240611
  Transmission Date: 20240715
  Serious: No
  Sender: FDA-Public Use
  Company Number: CA-ROCHE-2962257

PATIENT
  Age: 33 Year
  Sex: Female
  Weight: 61.23 kg

DRUGS (4)
  1. OCREVUS [Suspect]
     Active Substance: OCRELIZUMAB
     Indication: Relapsing-remitting multiple sclerosis
     Dosage: CONCENTRATE FOR INTRAVENOUS INFUSION; 300 MG AT DAY 0 AND 14, THEN 600 MG EVERY 6 MONTH
     Route: 042
     Dates: start: 20200429
  2. OCREVUS [Suspect]
     Active Substance: OCRELIZUMAB
     Dosage: OCRELIZUMAB 600MG IV IN 500 ML OF SODIUM CHLORIDE AT?0.9 PERCENT EVERY 6 MONTHS
     Route: 042
     Dates: start: 20230725
  3. LAMOTRIGINE [Concomitant]
     Active Substance: LAMOTRIGINE
  4. SOLU-MEDROL [Concomitant]
     Active Substance: METHYLPREDNISOLONE SODIUM SUCCINATE

REACTIONS (7)
  - Stress [Not Recovered/Not Resolved]
  - Amnesia [Not Recovered/Not Resolved]
  - COVID-19 [Unknown]
  - Fatigue [Recovering/Resolving]
  - Poor quality sleep [Unknown]
  - Imperception [Unknown]
  - Aphasia [Unknown]

NARRATIVE: CASE EVENT DATE: 20230117
